FAERS Safety Report 8777344 (Version 3)
Quarter: 2012Q4

REPORT INFORMATION
  Report Type: 
  Country: TW (occurrence: TW)
  Receive Date: 20120911
  Receipt Date: 20120928
  Transmission Date: 20130627
  Serious: Yes (Other)
  Sender: FDA-Public Use
  Company Number: TW-PFIZER INC-2012222017

PATIENT
  Age: 42 Year
  Sex: Female

DRUGS (6)
  1. LIPITOR [Suspect]
     Indication: TYPE IIA HYPERLIPIDAEMIA
     Dosage: 10 mg, 2x/day
     Route: 048
     Dates: start: 2001
  2. LIPITOR [Suspect]
     Dosage: 40 mg, 1x/day
     Route: 048
  3. LIPITOR [Suspect]
     Dosage: 20 mg, 1x/day
  4. LIPITOR [Suspect]
     Dosage: 40 mg, 1x/day
  5. INDERAL [Concomitant]
     Dosage: 10 mg, 2x/day
     Route: 048
  6. THYROXINE [Concomitant]
     Dosage: 10 mg, 1x/day
     Route: 048

REACTIONS (3)
  - Amnesia [Not Recovered/Not Resolved]
  - Liver function test abnormal [Recovering/Resolving]
  - Drug ineffective [Unknown]
